FAERS Safety Report 4451859-3 (Version None)
Quarter: 2004Q3

REPORT INFORMATION
  Report Type: 
  Country: None (occurrence: None)
  Receive Date: 20040913
  Receipt Date: 20040503
  Transmission Date: 20050211
  Serious: No
  Sender: FDA-Public Use
  Company Number: 2004-BP-03412BP

PATIENT
  Age: 75 Year
  Sex: Female
  Weight: 58 kg

DRUGS (13)
  1. SPIRIVA [Suspect]
     Indication: CHRONIC OBSTRUCTIVE AIRWAYS DISEASE
     Dosage: 2 INHALATIONS (18 MCG), IH
     Route: 055
  2. SPIRIVA [Suspect]
     Indication: EMPHYSEMA
     Dosage: 2 INHALATIONS (18 MCG), IH
     Route: 055
  3. SEREVENT [Concomitant]
  4. FLOVENT [Concomitant]
  5. SINGULAIR [Concomitant]
  6. THEOPHYLLINE [Concomitant]
  7. OXYGEN (OXYGEN) [Concomitant]
  8. LEVOXYL [Concomitant]
  9. FORTEO [Concomitant]
  10. MENEST [Concomitant]
  11. CALTRATE (CALCIUM CARBONATE) [Concomitant]
  12. PREVACID [Concomitant]
  13. DETROL LA [Concomitant]

REACTIONS (1)
  - DYSPNOEA [None]
